FAERS Safety Report 6478339-8 (Version None)
Quarter: 2009Q4

REPORT INFORMATION
  Report Type: 
  Country: None (occurrence: None)
  Receive Date: 20091202
  Receipt Date: 20091117
  Transmission Date: 20100525
  Serious: Yes (Congenital Anomaly, Other)
  Sender: FDA-Public Use
  Company Number: AUR-APL-2009-01306

PATIENT
  Sex: Male

DRUGS (7)
  1. FLUOXETINE [Suspect]
     Indication: DEPRESSION
     Dosage: 20MG- TRANSPLACENTAL
     Route: 064
  2. AMOXICILLIN [Concomitant]
  3. BECOTIDE 200MCG [Concomitant]
  4. CO-AMOXICLAV 325MG [Concomitant]
  5. GAVISCON [Concomitant]
  6. LACTULOSE 13ML [Concomitant]
  7. ALBUTEROL [Concomitant]

REACTIONS (2)
  - HYPOSPADIAS [None]
  - MATERNAL DRUGS AFFECTING FOETUS [None]
